FAERS Safety Report 5349065-3 (Version None)
Quarter: 2007Q2

REPORT INFORMATION
  Report Type: 
  Country: None (occurrence: None)
  Receive Date: 20070516
  Receipt Date: 20070221
  Transmission Date: 20071010
  Serious: No
  Sender: FDA-Public Use
  Company Number: 200711189US

PATIENT
  Sex: Female

DRUGS (2)
  1. APIDRA [Suspect]
  2. INSULIN (HUMALOG /00030501/) [Concomitant]

REACTIONS (1)
  - ARTHRITIS [None]
